FAERS Safety Report 24358334 (Version 1)
Quarter: 2024Q3

REPORT INFORMATION
  Report Type: Spontaneous
  Country: BG (occurrence: BG)
  Receive Date: 20240924
  Receipt Date: 20240924
  Transmission Date: 20241017
  Serious: Yes (Hospitalization, Other)
  Sender: BAXTER
  Company Number: BG-EMA-DD-20240905-7482675-111040

PATIENT
  Age: 60 Year
  Sex: Female

DRUGS (15)
  1. CYCLOPHOSPHAMIDE [Suspect]
     Active Substance: CYCLOPHOSPHAMIDE
     Indication: Myeloid leukaemia
     Dosage: UNK
     Route: 065
     Dates: start: 2010
  2. RAMIPRIL [Suspect]
     Active Substance: RAMIPRIL
     Indication: Cardiac failure
     Dosage: 1 DF, BID (2X1TABLET)
     Route: 048
     Dates: start: 201903
  3. RAMIPRIL [Suspect]
     Active Substance: RAMIPRIL
     Dosage: 5 MG, BID, TABLET
     Route: 048
  4. BISOPROLOL [Suspect]
     Active Substance: BISOPROLOL\BISOPROLOL FUMARATE
     Indication: Cardiac failure
     Dosage: 2.5 MG, QD, BISOPROLOL SALT NOT SPECIFIED
     Route: 048
     Dates: start: 201903
  5. AMLODIPINE [Suspect]
     Active Substance: AMLODIPINE BESYLATE
     Indication: Cardiotoxicity
     Dosage: 1 DF, BID (2X1 TABLET)
     Route: 048
     Dates: start: 201903
  6. MYCOPHENOLATE MOFETIL [Suspect]
     Active Substance: MYCOPHENOLATE MOFETIL
     Indication: Myeloid leukaemia
     Dosage: 2 DF, TID (3X2TABLETS)
     Route: 048
  7. MYCOPHENOLATE MOFETIL [Suspect]
     Active Substance: MYCOPHENOLATE MOFETIL
     Dosage: 500 MG, TID, FILM-COATED TABLET
     Route: 048
  8. PANTOPRAZOLE [Concomitant]
     Active Substance: PANTOPRAZOLE
     Indication: Cardiotoxicity
     Dosage: 1 DF, BID (2X1TABLET)
     Route: 048
     Dates: start: 201903
  9. PANTOPRAZOLE [Concomitant]
     Active Substance: PANTOPRAZOLE
     Dosage: 20 MG, BID, TABLET
     Route: 048
  10. SPIRONOLACTONE [Concomitant]
     Active Substance: SPIRONOLACTONE
     Indication: Cardiotoxicity
     Dosage: 1 DF, BID (2X1 TABLET)
     Route: 048
     Dates: start: 201903
  11. ACYCLOVIR [Concomitant]
     Active Substance: ACYCLOVIR
     Indication: Cardiotoxicity
     Dosage: 400 MG, TID, TABLET
     Route: 048
     Dates: start: 201903
  12. ACYCLOVIR [Concomitant]
     Active Substance: ACYCLOVIR
     Dosage: 400 MG, TID, TABLET
     Route: 048
  13. TRIMETAZIDINE [Concomitant]
     Active Substance: TRIMETAZIDINE
     Indication: Cardiotoxicity
     Dosage: 1 DF, BID (2X1 TABLET)
     Route: 048
     Dates: start: 201903
  14. URSODIOL [Concomitant]
     Active Substance: URSODIOL
     Indication: Cardiotoxicity
     Dosage: 250 MG, 1 DF, BID (2X1 TABLET)
     Route: 048
     Dates: start: 201903
  15. METHYLPREDNISOLONE [Concomitant]
     Active Substance: METHYLPREDNISOLONE
     Indication: Cardiotoxicity
     Dosage: 16 MG, QD
     Route: 048
     Dates: start: 201903

REACTIONS (11)
  - Mitral valve incompetence [Recovering/Resolving]
  - Peripheral swelling [Recovering/Resolving]
  - Tricuspid valve incompetence [Recovered/Resolved]
  - Rales [Recovering/Resolving]
  - Joint swelling [Recovering/Resolving]
  - Cardiotoxicity [Recovering/Resolving]
  - Dyspnoea [Recovered/Resolved]
  - Heart failure with reduced ejection fraction [Recovering/Resolving]
  - Fatigue [Recovering/Resolving]
  - General physical health deterioration [Recovering/Resolving]
  - Pulmonary hypertension [Recovering/Resolving]

NARRATIVE: CASE EVENT DATE: 20190301
